FAERS Safety Report 6153802-8 (Version None)
Quarter: 2009Q2

REPORT INFORMATION
  Report Type: 
  Country: None (occurrence: None)
  Receive Date: 20090414
  Receipt Date: 20071109
  Transmission Date: 20091009
  Serious: Yes (Death, Hospitalization, Other)
  Sender: FDA-Public Use
  Company Number: US-ASTRAZENECA-2006UW23609

PATIENT
  Age: 84 Year
  Sex: Female
  Weight: 71 kg

DRUGS (22)
  1. SEROQUEL [Suspect]
     Indication: SCHIZOPHRENIA
     Route: 048
     Dates: start: 20040101, end: 20050101
  2. SEROQUEL [Suspect]
     Indication: DELUSION
     Route: 048
     Dates: start: 20040101, end: 20050101
  3. SEROQUEL [Suspect]
     Indication: AFFECTIVE DISORDER
     Route: 048
     Dates: start: 20040101, end: 20050101
  4. SEROQUEL [Suspect]
     Indication: PSYCHOTIC DISORDER
     Route: 048
     Dates: start: 20040101, end: 20050101
  5. SEROQUEL [Suspect]
     Indication: DEMENTIA
     Route: 048
     Dates: start: 20040101, end: 20050101
  6. SEROQUEL [Suspect]
     Dosage: 12.5MG - 100MG
     Route: 048
     Dates: start: 20040114
  7. SEROQUEL [Suspect]
     Dosage: 12.5MG - 100MG
     Route: 048
     Dates: start: 20040114
  8. SEROQUEL [Suspect]
     Dosage: 12.5MG - 100MG
     Route: 048
     Dates: start: 20040114
  9. SEROQUEL [Suspect]
     Dosage: 12.5MG - 100MG
     Route: 048
     Dates: start: 20040114
  10. SEROQUEL [Suspect]
     Dosage: 12.5MG - 100MG
     Route: 048
     Dates: start: 20040114
  11. METOPROLOL TARTRATE [Concomitant]
  12. PLAVIX [Concomitant]
  13. AMARYL [Concomitant]
  14. ISOSORBIDE MONONITRATE [Concomitant]
  15. BUSPAR [Concomitant]
  16. INSULIN [Concomitant]
  17. NITROSTAT [Concomitant]
  18. DILANTIN [Concomitant]
  19. ATIVAN [Concomitant]
  20. LEXAPRO [Concomitant]
  21. NAPROXEN SODIUM [Concomitant]
  22. PEPCID [Concomitant]

REACTIONS (16)
  - CELLULITIS [None]
  - CHEST PAIN [None]
  - CONVULSION [None]
  - COUGH [None]
  - DEATH [None]
  - DIABETES MELLITUS [None]
  - DIARRHOEA [None]
  - DIZZINESS [None]
  - DYSPHAGIA [None]
  - GENERAL PHYSICAL HEALTH DETERIORATION [None]
  - HEADACHE [None]
  - MUSCLE SPASMS [None]
  - NAIL HYPERTROPHY [None]
  - ORAL HERPES [None]
  - RESPIRATORY TRACT CONGESTION [None]
  - SPINAL OSTEOARTHRITIS [None]
